FAERS Safety Report 6738306-3 (Version None)
Quarter: 2010Q2

REPORT INFORMATION
  Report Type: 
  Country: None (occurrence: None)
  Receive Date: 20100524
  Receipt Date: 20100519
  Transmission Date: 20101027
  Serious: Yes (Hospitalization)
  Sender: FDA-Public Use
  Company Number: US-MERCK-1004USA04678

PATIENT
  Age: 13 Year
  Sex: Female

DRUGS (8)
  1. SINGULAIR [Suspect]
     Indication: HYPERSENSITIVITY
     Route: 048
     Dates: start: 20090401
  2. SINGULAIR [Suspect]
     Route: 048
     Dates: start: 20100301
  3. SINGULAIR [Suspect]
     Route: 048
  4. SINGULAIR [Suspect]
     Indication: ASTHMA
     Route: 048
     Dates: start: 20090401
  5. SINGULAIR [Suspect]
     Route: 048
  6. SINGULAIR [Suspect]
     Route: 048
     Dates: start: 20100301
  7. PROAIR (ALBUTEROL SULFATE) [Concomitant]
     Route: 065
  8. ADVAIR DISKUS 100/50 [Concomitant]
     Route: 065

REACTIONS (2)
  - ATTENTION-SEEKING BEHAVIOUR [None]
  - OVERDOSE [None]
